FAERS Safety Report 7585494-5 (Version None)
Quarter: 2011Q3

REPORT INFORMATION
  Report Type: 
  Country: None (occurrence: None)
  Receive Date: 20110701
  Receipt Date: 20110617
  Transmission Date: 20111222
  Serious: Yes (Hospitalization)
  Sender: FDA-Public Use
  Company Number: JP-BAYER-2011-018933

PATIENT
  Age: 72 Year
  Sex: Male
  Weight: 58.1 kg

DRUGS (6)
  1. SORAFENIB [Suspect]
     Dosage: ONCE DAILY 400 MG
     Route: 048
     Dates: start: 20110210, end: 20110228
  2. SORAFENIB [Suspect]
     Dosage: 400 MG, ONCE A DAY
     Route: 048
     Dates: end: 20110615
  3. MONOCLONAL ANTIBODIES [Suspect]
     Dosage: 4 MG/KG, OW
     Route: 042
     Dates: start: 20110210, end: 20110224
  4. SORAFENIB [Suspect]
     Indication: HEPATIC NEOPLASM MALIGNANT
     Dosage: 400 MG, TWICE A DAY
     Route: 048
     Dates: start: 20110118, end: 20110202
  5. MONOCLONAL ANTIBODIES [Suspect]
     Dosage: 4MG/KG. ONCE A WEEK
     Route: 042
     Dates: end: 20110609
  6. MONOCLONAL ANTIBODIES [Suspect]
     Indication: HEPATIC NEOPLASM MALIGNANT
     Dosage: 6 MG/KG, OW
     Route: 042
     Dates: start: 20110118, end: 20110127

REACTIONS (4)
  - LIVER INJURY [None]
  - DECREASED APPETITE [None]
  - MALAISE [None]
  - JAUNDICE [None]
